FAERS Safety Report 14708000 (Version 4)
Quarter: 2018Q2

REPORT INFORMATION
  Report Type: Spontaneous
  Country: US (occurrence: US)
  Receive Date: 20180403
  Receipt Date: 20180622
  Transmission Date: 20180711
  Serious: No
  Sender: FDA-Public Use
  Company Number: US-PFIZER INC-2018134163

PATIENT
  Age: 56 Year
  Sex: Female

DRUGS (2)
  1. XELJANZ [Suspect]
     Active Substance: TOFACITINIB CITRATE
     Dosage: 5 MG, 1X/DAY
     Dates: start: 201804, end: 2018
  2. XELJANZ [Suspect]
     Active Substance: TOFACITINIB CITRATE
     Dosage: 5 MG, UNK
     Dates: start: 2018

REACTIONS (8)
  - Skin wrinkling [Unknown]
  - Dry skin [Unknown]
  - Laryngitis [Unknown]
  - Malaise [Unknown]
  - Dyspnoea [Unknown]
  - Intentional product misuse [Unknown]
  - Bronchitis [Unknown]
  - Sinusitis [Unknown]

NARRATIVE: CASE EVENT DATE: 2018
